FAERS Safety Report 5160905-3 (Version None)
Quarter: 2006Q4

REPORT INFORMATION
  Report Type: 
  Country: None (occurrence: None)
  Receive Date: 20061121
  Receipt Date: 20061110
  Transmission Date: 20070319
  Serious: No
  Sender: FDA-Public Use
  Company Number: 2006-145856-NL

PATIENT
  Age: 48 Year
  Sex: Female

DRUGS (1)
  1. ETONOGESTREL [Suspect]
     Dosage: DF
     Dates: start: 20030401, end: 20040301

REACTIONS (6)
  - BREAST CANCER FEMALE [None]
  - COMPLICATION OF DEVICE INSERTION [None]
  - COMPLICATION OF DEVICE REMOVAL [None]
  - MEDICAL DEVICE PAIN [None]
  - OPERATIVE HAEMORRHAGE [None]
  - PROCEDURAL COMPLICATION [None]
